FAERS Safety Report 9134382 (Version 2)
Quarter: 2013Q2

REPORT INFORMATION
  Report Type: Spontaneous
  Country: US (occurrence: US)
  Receive Date: 20130304
  Receipt Date: 20130412
  Transmission Date: 20140414
  Serious: No
  Sender: FDA-Public Use
  Company Number: US-JNJFOC-20130111731

PATIENT
  Sex: Female
  Weight: 72.58 kg

DRUGS (3)
  1. INVEGA [Suspect]
     Indication: SCHIZOPHRENIA
     Dosage: 6-12 MG
     Route: 048
     Dates: start: 201209, end: 201211
  2. KLONOPIN [Concomitant]
     Indication: ANXIETY
     Dates: start: 20120924
  3. PRILOSEC [Concomitant]
     Indication: GASTROOESOPHAGEAL REFLUX DISEASE
     Dates: start: 20120515, end: 20130214

REACTIONS (1)
  - Galactorrhoea [Recovered/Resolved]
